FAERS Safety Report 10784988 (Version 5)
Quarter: 2015Q4

REPORT INFORMATION
  Report Type: Spontaneous
  Country: US (occurrence: US)
  Receive Date: 20150211
  Receipt Date: 20151007
  Transmission Date: 20160304
  Serious: Yes (Hospitalization, Other)
  Sender: FDA-Public Use
  Company Number: US-GLAXOSMITHKLINE-A1075856A

PATIENT
  Sex: Female

DRUGS (9)
  1. SUMAVEL [Concomitant]
     Active Substance: SUMATRIPTAN SUCCINATE
  2. LAMOTRIGINE TABLET [Suspect]
     Active Substance: LAMOTRIGINE
     Indication: PRODUCT USED FOR UNKNOWN INDICATION
  3. LAMICTAL XR [Suspect]
     Active Substance: LAMOTRIGINE
     Indication: SEIZURE
     Dosage: 200 MG, BID
     Route: 048
     Dates: start: 2008
  4. TREXIMET [Concomitant]
     Active Substance: NAPROXEN SODIUM\SUMATRIPTAN SUCCINATE
  5. DEPAKOTE ER [Concomitant]
     Active Substance: DIVALPROEX SODIUM
  6. PRENATAL [Concomitant]
     Active Substance: VITAMINS
  7. FIORINAL NOS [Concomitant]
  8. LAMOTRIGINE PROLONGED-RELEASE TABLET [Suspect]
     Active Substance: LAMOTRIGINE
     Indication: PRODUCT USED FOR UNKNOWN INDICATION
  9. FOLATE [Concomitant]
     Active Substance: FOLATE SODIUM

REACTIONS (20)
  - Foot fracture [Unknown]
  - Somnolence [Unknown]
  - Poor quality sleep [Unknown]
  - Headache [Unknown]
  - Lower limb fracture [Unknown]
  - Drug ineffective [Unknown]
  - Back pain [Recovering/Resolving]
  - Seizure [Unknown]
  - Fall [Unknown]
  - Hypoaesthesia [Unknown]
  - Neck pain [Unknown]
  - Dysphonia [Unknown]
  - Gait disturbance [Unknown]
  - Arthralgia [Unknown]
  - Body mass index increased [Unknown]
  - Pain in extremity [Unknown]
  - Vision blurred [Unknown]
  - Paraesthesia [Unknown]
  - Drug intolerance [Unknown]
  - Anxiety [Unknown]
